FAERS Safety Report 11983245 (Version 3)
Quarter: 2016Q1

REPORT INFORMATION
  Report Type: Spontaneous
  Country: AR (occurrence: AR)
  Receive Date: 20160201
  Receipt Date: 20160205
  Transmission Date: 20160526
  Serious: Yes (Other)
  Sender: FDA-Public Use
  Company Number: PHHY2016AR012079

PATIENT
  Age: 62 Year
  Sex: Female

DRUGS (1)
  1. SANDIMMUN [Suspect]
     Active Substance: CYCLOSPORINE
     Indication: LIVER TRANSPLANT
     Dosage: 150 MG, QD
     Route: 065
     Dates: start: 2003

REACTIONS (5)
  - Thrombosis [Recovered/Resolved]
  - Diabetes mellitus [Recovered/Resolved]
  - Acute myocardial infarction [Recovered/Resolved]
  - Neuropathy peripheral [Recovered/Resolved]
  - Breast cancer [Recovered/Resolved]
